FAERS Safety Report 24918643 (Version 1)
Quarter: 2025Q1

REPORT INFORMATION
  Report Type: Spontaneous
  Country: US (occurrence: US)
  Receive Date: 20250203
  Receipt Date: 20250203
  Transmission Date: 20250408
  Serious: Yes (Death)
  Sender: ENDO
  Company Number: US-ENDO USA, INC.-2025-000277

PATIENT
  Age: 46 Year
  Sex: Female

DRUGS (2)
  1. TIZANIDINE HYDROCHLORIDE [Suspect]
     Active Substance: TIZANIDINE HYDROCHLORIDE
     Indication: Product used for unknown indication
     Route: 048
  2. ZOLPIDEM TARTRATE [Suspect]
     Active Substance: ZOLPIDEM TARTRATE
     Indication: Product used for unknown indication
     Route: 048

REACTIONS (1)
  - Completed suicide [Fatal]

NARRATIVE: CASE EVENT DATE: 20230101
